FAERS Safety Report 15853647 (Version 3)
Quarter: 2019Q2

REPORT INFORMATION
  Report Type: Spontaneous
  Country: US (occurrence: US)
  Receive Date: 20190122
  Receipt Date: 20190509
  Transmission Date: 20190711
  Serious: No
  Sender: FDA-Public Use
  Company Number: US-LEXICON PHARMACEUTICALS, INC-19-1606-00004

PATIENT
  Sex: Female

DRUGS (1)
  1. TELOTRISTAT ETHYL [Suspect]
     Active Substance: TELOTRISTAT ETHYL
     Indication: CARCINOID SYNDROME
     Route: 048
     Dates: start: 20170707

REACTIONS (7)
  - Thrombocytopenia [Unknown]
  - Fatigue [Unknown]
  - Pernicious anaemia [Unknown]
  - Muscle atrophy [Unknown]
  - Vitamin B12 deficiency [Unknown]
  - Musculoskeletal discomfort [Recovering/Resolving]
  - Abdominal discomfort [Not Recovered/Not Resolved]
